FAERS Safety Report 9195461 (Version 1)
Quarter: 2013Q1

REPORT INFORMATION
  Report Type: Other
  Country: US (occurrence: US)
  Receive Date: 20130328
  Receipt Date: 20130328
  Transmission Date: 20140127
  Serious: Yes (Other)
  Sender: FDA-Public Use
  Company Number: US-GLENMARK GENERICS INC.-2013GMK005307

PATIENT
  Sex: Female

DRUGS (1)
  1. NORGESTIMATE AND ETHINYL ESTRADIOL [Suspect]
     Indication: PRODUCT USED FOR UNKNOWN INDICATION
     Dosage: UNK

REACTIONS (7)
  - Depression [Unknown]
  - Affect lability [Unknown]
  - Crying [Unknown]
  - Food craving [Unknown]
  - Breast tenderness [Unknown]
  - Menstruation irregular [Unknown]
  - Menopausal symptoms [None]
